FAERS Safety Report 12166978 (Version 4)
Quarter: 2018Q2

REPORT INFORMATION
  Report Type: Report from Study
  Country: BE (occurrence: BE)
  Receive Date: 20160310
  Receipt Date: 20180522
  Transmission Date: 20180711
  Serious: Yes (Hospitalization)
  Sender: FDA-Public Use
  Company Number: BE-BRISTOL-MYERS SQUIBB COMPANY-21287867

PATIENT
  Age: 61 Year
  Sex: Female
  Weight: 46 kg

DRUGS (17)
  1. LOPERAMIDE [Concomitant]
     Active Substance: LOPERAMIDE
     Indication: PRODUCT USED FOR UNKNOWN INDICATION
     Route: 065
  2. ALIZAPRIDE DCI [Concomitant]
     Indication: PRODUCT USED FOR UNKNOWN INDICATION
     Dosage: 150 MG, UNK
     Route: 048
  3. NIVOLUMAB [Suspect]
     Active Substance: NIVOLUMAB
     Indication: LYMPHOMA
     Dosage: 3 MG/KG, Q2WK
     Route: 042
     Dates: start: 20140430
  4. CREON [Concomitant]
     Active Substance: PANCRELIPASE AMYLASE\PANCRELIPASE LIPASE\PANCRELIPASE PROTEASE
     Indication: PRODUCT USED FOR UNKNOWN INDICATION
     Route: 065
  5. ACETYLCYSTEINE. [Concomitant]
     Active Substance: ACETYLCYSTEINE
     Indication: PRODUCT USED FOR UNKNOWN INDICATION
     Route: 065
  6. TRAMADOL. [Concomitant]
     Active Substance: TRAMADOL
     Indication: PRODUCT USED FOR UNKNOWN INDICATION
     Dosage: 50 MG, ONE TIME DOSE
     Route: 042
  7. ALIZAPRIDE [Concomitant]
     Active Substance: ALIZAPRIDE
     Indication: PRODUCT USED FOR UNKNOWN INDICATION
     Dosage: 50 MG, ONE TIME DOSE
     Route: 042
  8. POTASSIUM CHLORIDE. [Concomitant]
     Active Substance: POTASSIUM CHLORIDE
     Indication: PRODUCT USED FOR UNKNOWN INDICATION
     Dosage: 20 ML, Q12H
     Route: 065
  9. NATRIUMHYDROGENCARBONAT [Concomitant]
     Active Substance: SODIUM BICARBONATE
     Indication: PRODUCT USED FOR UNKNOWN INDICATION
     Route: 065
  10. PARACETAMOL [Concomitant]
     Active Substance: ACETAMINOPHEN
     Indication: PRODUCT USED FOR UNKNOWN INDICATION
     Route: 065
  11. ALIZAPRIDE [Concomitant]
     Active Substance: ALIZAPRIDE
     Indication: PRODUCT USED FOR UNKNOWN INDICATION
     Dosage: 50 MG, PRN
     Route: 048
  12. SODIUM CHLORIDE. [Concomitant]
     Active Substance: SODIUM CHLORIDE
     Indication: PRODUCT USED FOR UNKNOWN INDICATION
     Dosage: 1000 ML, Q12H
     Route: 065
  13. ZANTAC [Concomitant]
     Active Substance: RANITIDINE HYDROCHLORIDE
     Indication: PRODUCT USED FOR UNKNOWN INDICATION
     Dosage: 150 MG, QD
     Route: 048
  14. PERIO AID [Concomitant]
     Indication: PRODUCT USED FOR UNKNOWN INDICATION
     Route: 065
  15. RANITIDINE. [Concomitant]
     Active Substance: RANITIDINE
     Indication: PRODUCT USED FOR UNKNOWN INDICATION
     Dosage: 150 MG, QD
     Route: 048
  16. IMODIUM [Concomitant]
     Active Substance: LOPERAMIDE HYDROCHLORIDE
     Indication: PRODUCT USED FOR UNKNOWN INDICATION
     Dosage: 2 MG, PRN
     Route: 048
  17. FOLIC ACID. [Concomitant]
     Active Substance: FOLIC ACID
     Indication: PRODUCT USED FOR UNKNOWN INDICATION
     Route: 065

REACTIONS (1)
  - Diarrhoea [Recovered/Resolved]

NARRATIVE: CASE EVENT DATE: 20140806
